FAERS Safety Report 7659952-9 (Version None)
Quarter: 2011Q3

REPORT INFORMATION
  Report Type: 
  Country: None (occurrence: None)
  Receive Date: 20110805
  Receipt Date: 20110728
  Transmission Date: 20111222
  Serious: Yes (Hospitalization)
  Sender: FDA-Public Use
  Company Number: US-BAYER-2010-002276

PATIENT
  Age: 31 Year
  Sex: Female
  Weight: 81.633 kg

DRUGS (3)
  1. YASMIN [Suspect]
     Indication: CONTRACEPTION
     Dosage: UNK
     Dates: start: 20010101, end: 20050101
  2. PRENATAL S [Concomitant]
  3. YAZ [Suspect]
     Indication: CONTRACEPTION
     Dosage: UNK
     Dates: start: 20010101, end: 20050101

REACTIONS (4)
  - CHOLELITHIASIS [None]
  - PREMATURE DELIVERY [None]
  - GALLBLADDER INJURY [None]
  - CHOLECYSTITIS CHRONIC [None]
